FAERS Safety Report 9887146 (Version 3)
Quarter: 2014Q1

REPORT INFORMATION
  Report Type: Spontaneous
  Country: US (occurrence: US)
  Receive Date: 20140211
  Receipt Date: 20140326
  Transmission Date: 20141002
  Serious: Yes (Hospitalization)
  Sender: FDA-Public Use
  Company Number: US-BIOGENIDEC-2014BI012064

PATIENT
  Age: 24 Year
  Sex: Female

DRUGS (1)
  1. TECFIDERA [Suspect]
     Indication: MULTIPLE SCLEROSIS
     Dates: start: 20130701

REACTIONS (4)
  - Multiple sclerosis relapse [Recovered/Resolved]
  - Mania [Recovered/Resolved]
  - Amenorrhoea [Recovered/Resolved]
  - Depression [Unknown]
